APPROVED DRUG PRODUCT: DICLOFENAC SODIUM
Active Ingredient: DICLOFENAC SODIUM
Strength: 100MG
Dosage Form/Route: TABLET, EXTENDED RELEASE;ORAL
Application: A076201 | Product #001 | TE Code: AB
Applicant: DEXCEL LTD
Approved: Nov 6, 2002 | RLD: No | RS: Yes | Type: RX